FAERS Safety Report 8362047-2 (Version None)
Quarter: 2012Q2

REPORT INFORMATION
  Report Type: 
  Country: None (occurrence: None)
  Receive Date: 20120515
  Receipt Date: 20120510
  Transmission Date: 20120825
  Serious: No
  Sender: FDA-Public Use
  Company Number: US-ASTRAZENECA-2012SE30089

PATIENT
  Age: 75 Year
  Sex: Female
  Weight: 99.8 kg

DRUGS (4)
  1. BLOOD PRESSURE MEDICATION [Concomitant]
  2. NEXIUM [Suspect]
     Indication: GASTROOESOPHAGEAL REFLUX DISEASE
     Route: 048
  3. SYNTHROID [Concomitant]
  4. NEXIUM [Suspect]
     Route: 048

REACTIONS (3)
  - ARTHRITIS [None]
  - GASTRIC DISORDER [None]
  - OFF LABEL USE [None]
